FAERS Safety Report 8011078-0 (Version None)
Quarter: 2011Q4

REPORT INFORMATION
  Report Type: 
  Country: None (occurrence: None)
  Receive Date: 20111228
  Receipt Date: 20111219
  Transmission Date: 20120403
  Serious: Yes (Hospitalization, Disabling)
  Sender: FDA-Public Use
  Company Number: JP-B.I. PHARMACEUTICALS,INC./RIDGEFIELD-2011-BP-19175NB

PATIENT
  Sex: Male

DRUGS (3)
  1. VERAPAMIL HCL [Concomitant]
     Dosage: 40 MG
     Route: 048
  2. PRADAXA [Suspect]
     Indication: ATRIAL FIBRILLATION
     Dosage: 220 MG
     Route: 048
     Dates: start: 20110627, end: 20110720
  3. PREDNISOLONE [Suspect]
     Indication: INTERSTITIAL LUNG DISEASE
     Dosage: 5 MG
     Route: 048

REACTIONS (4)
  - ANAEMIA [None]
  - INTESTINAL HAEMORRHAGE [None]
  - RENAL FAILURE CHRONIC [None]
  - MELAENA [None]
